FAERS Safety Report 4647552-4 (Version None)
Quarter: 2005Q2

REPORT INFORMATION
  Report Type: 
  Country: None (occurrence: None)
  Receive Date: 20050428
  Receipt Date: 20050420
  Transmission Date: 20051028
  Serious: Yes (Hospitalization)
  Sender: FDA-Public Use
  Company Number: DE-ROCHE-402372

PATIENT
  Age: 42 Year
  Sex: Male
  Weight: 71.5 kg

DRUGS (9)
  1. DACLIZUMAB [Suspect]
     Route: 042
     Dates: start: 20040517, end: 20040712
  2. MYCOPHENOLATE MOFETIL [Suspect]
     Route: 048
     Dates: start: 20040516, end: 20050409
  3. MYCOPHENOLATE MOFETIL [Suspect]
     Route: 048
     Dates: start: 20050410
  4. TACROLIMUS [Suspect]
     Route: 048
     Dates: start: 20040516
  5. PREDNISOLONE [Suspect]
     Route: 042
     Dates: start: 20040517
  6. DELIX [Concomitant]
  7. METOPROLOL TARTRATE [Concomitant]
  8. AMLODIPINE [Concomitant]
  9. VIGANTOLETTEN [Concomitant]

REACTIONS (1)
  - PYELONEPHRITIS ACUTE [None]
